FAERS Safety Report 8225279-X (Version None)
Quarter: 2012Q1

REPORT INFORMATION
  Report Type: 
  Country: None (occurrence: None)
  Receive Date: 20120321
  Receipt Date: 20110511
  Transmission Date: 20120608
  Serious: Yes (Other)
  Sender: FDA-Public Use
  Company Number: US-GLAXOSMITHKLINE-A0927585A

PATIENT
  Age: 62 Year
  Sex: Female

DRUGS (2)
  1. TYKERB [Suspect]
     Indication: BREAST CANCER
     Dosage: 1250MG IN THE MORNING
     Route: 065
  2. HERCEPTIN [Concomitant]

REACTIONS (4)
  - DIARRHOEA [None]
  - THERAPEUTIC RESPONSE DECREASED [None]
  - BREAST CANCER [None]
  - BREAST CANCER RECURRENT [None]
